FAERS Safety Report 20587275 (Version 1)
Quarter: 2022Q1

REPORT INFORMATION
  Report Type: Other
  Country: EG (occurrence: EG)
  Receive Date: 20220314
  Receipt Date: 20220314
  Transmission Date: 20220423
  Serious: Yes (Other)
  Sender: FDA-Public Use
  Company Number: EG-GE HEALTHCARE-2022CSU001648

PATIENT
  Age: 28 Year
  Sex: Female

DRUGS (3)
  1. OMNIPAQUE [Suspect]
     Active Substance: IOHEXOL
     Indication: X-ray
     Dosage: 80 ML, SINGLE
     Route: 042
     Dates: start: 20220220, end: 20220220
  2. OMNIPAQUE [Suspect]
     Active Substance: IOHEXOL
     Indication: Bone cancer
  3. OMNIPAQUE [Suspect]
     Active Substance: IOHEXOL
     Indication: Lung neoplasm malignant

REACTIONS (8)
  - Ear pain [Recovered/Resolved]
  - Nasal discomfort [Recovered/Resolved]
  - Ocular hyperaemia [Recovered/Resolved]
  - Dyspnoea [Recovered/Resolved]
  - Cough [Recovered/Resolved]
  - Swelling [Recovered/Resolved]
  - Erythema [Recovered/Resolved]
  - Pruritus [Recovered/Resolved]

NARRATIVE: CASE EVENT DATE: 20220220
